FAERS Safety Report 7973173-1 (Version None)
Quarter: 2011Q4

REPORT INFORMATION
  Report Type: 
  Country: None (occurrence: None)
  Receive Date: 20111213
  Receipt Date: 20111205
  Transmission Date: 20120403
  Serious: Yes (Life-Threatening, Hospitalization, Disabling, Other)
  Sender: FDA-Public Use
  Company Number: JP-ASTRAZENECA-2011SE53080

PATIENT
  Age: 27586 Day
  Sex: Male

DRUGS (32)
  1. OMEPRAZOLE [Concomitant]
     Indication: GASTRITIS PROPHYLAXIS
     Route: 048
     Dates: start: 20101214, end: 20110826
  2. OMEPRAZOLE [Concomitant]
     Route: 042
     Dates: start: 20110918
  3. NOVOHEPARIN [Concomitant]
     Indication: ANTICOAGULANT THERAPY
     Route: 042
     Dates: start: 20110919
  4. MINERALIN [Concomitant]
     Indication: MINERAL SUPPLEMENTATION
     Dosage: 1 A DAILY
     Route: 042
     Dates: start: 20110915
  5. SCOPOLAMINE [Concomitant]
     Indication: ABDOMINAL PAIN UPPER
     Route: 042
     Dates: start: 20110921
  6. AZUNOL [Concomitant]
     Indication: DERMATITIS
     Route: 003
     Dates: start: 20110914
  7. LASIX [Concomitant]
     Indication: AORTIC STENOSIS
     Route: 048
     Dates: start: 20101214, end: 20110826
  8. METHYLCOBAL [Concomitant]
     Indication: HYPOAESTHESIA
     Route: 048
     Dates: start: 20101214, end: 20110826
  9. ALENDRONATE SODIUM [Concomitant]
     Indication: OSTEOPOROSIS
     Route: 048
     Dates: start: 20101214, end: 20110821
  10. INTRALIPID 10% [Concomitant]
     Indication: LIPIDS ABNORMAL
     Route: 042
     Dates: start: 20110915
  11. LULICON [Concomitant]
     Indication: FUNGAL SKIN INFECTION
     Route: 003
     Dates: start: 20110909
  12. HUMURIN R [Concomitant]
     Indication: BLOOD GLUCOSE ABNORMAL
     Dosage: DOSE STRENGTH 100 UNITS; 4 UNITS DAILY
     Route: 058
     Dates: start: 20110909
  13. PREDNISOLONE SODIUM SUCCINATE INJ [Concomitant]
     Indication: PNEUMONIA
     Route: 042
     Dates: start: 20110827
  14. PLAVIX [Suspect]
     Indication: ACUTE CORONARY SYNDROME
     Route: 048
     Dates: start: 20110826, end: 20110826
  15. PREDNISOLONE [Concomitant]
     Indication: STEROID THERAPY
     Route: 048
     Dates: start: 20101214, end: 20110826
  16. PYRINAZIN [Concomitant]
     Indication: PAIN
     Route: 048
  17. SERUCINE [Concomitant]
     Indication: ANXIOLYTIC THERAPY
     Route: 042
     Dates: start: 20110921
  18. ALLOID G [Concomitant]
     Indication: GASTRITIS PROPHYLAXIS
     Route: 048
     Dates: start: 20110827, end: 20110829
  19. SORITA T-1 [Concomitant]
     Indication: FLUID REPLACEMENT
     Route: 042
     Dates: start: 20110827
  20. EPINASTINE HYDROCHLORIDE [Concomitant]
     Indication: PRURITUS
     Route: 048
     Dates: start: 20101214, end: 20110826
  21. ISOSORBIDE DINITRATE [Concomitant]
     Indication: VASODILATATION
     Route: 042
     Dates: start: 20110826, end: 20110827
  22. CATABON [Concomitant]
     Indication: RENAL VESSEL DISORDER
     Route: 042
     Dates: start: 20110826
  23. ROXATIDINE ACETATE HCL [Concomitant]
     Indication: GASTROINTESTINAL HAEMORRHAGE
     Route: 048
     Dates: start: 20110923
  24. PLACEBO [Suspect]
     Indication: ACUTE CORONARY SYNDROME
     Dosage: ONCE DAILY
     Route: 048
     Dates: start: 20110826, end: 20110826
  25. LOSARTAN POTASSIUM [Concomitant]
     Indication: AORTIC STENOSIS
     Route: 048
     Dates: start: 20101214, end: 20110826
  26. ALBUMINER [Concomitant]
     Indication: HYPOALBUMINAEMIA
     Route: 042
     Dates: start: 20110921
  27. MARZIREME [Concomitant]
     Indication: GASTRITIS PROPHYLAXIS
     Route: 048
     Dates: start: 20110827, end: 20110829
  28. HEPARIN [Suspect]
     Indication: ANTICOAGULANT THERAPY
     Route: 042
     Dates: start: 20110826, end: 20110826
  29. CARVEDILOL [Concomitant]
     Indication: AORTIC STENOSIS
     Route: 048
     Dates: start: 20101214, end: 20110826
  30. DORUMICUM [Concomitant]
     Indication: ANXIOLYTIC THERAPY
     Route: 042
     Dates: start: 20110827, end: 20110912
  31. ASPIRIN [Suspect]
     Indication: ACUTE CORONARY SYNDROME
     Route: 048
     Dates: start: 20110826, end: 20110826
  32. BIO-THREE [Concomitant]
     Indication: ANTIBIOTIC THERAPY
     Route: 048
     Dates: start: 20110912

REACTIONS (2)
  - PULMONARY OEDEMA [None]
  - DYSPNOEA [None]
